FAERS Safety Report 15778788 (Version 1)
Quarter: 2019Q1

REPORT INFORMATION
  Report Type: Spontaneous
  Country: JP (occurrence: JP)
  Receive Date: 20190101
  Receipt Date: 20190101
  Transmission Date: 20190417
  Serious: Yes (Hospitalization)
  Sender: FDA-Public Use
  Company Number: JP-ACI HEALTHCARE LIMITED-2060729

PATIENT
  Age: 75 Year
  Sex: Male

DRUGS (2)
  1. GABAPENTIN. [Suspect]
     Active Substance: GABAPENTIN
  2. PHENYTOIN. [Suspect]
     Active Substance: PHENYTOIN
     Route: 065

REACTIONS (7)
  - Eyelid ptosis [None]
  - Swelling [None]
  - Ataxia [None]
  - Dysaesthesia [None]
  - Hypothyroidism [Recovered/Resolved]
  - Restlessness [None]
  - Dysphonia [None]
